FAERS Safety Report 13225079 (Version 3)
Quarter: 2017Q2

REPORT INFORMATION
  Report Type: Report from Study
  Country: CA (occurrence: CA)
  Receive Date: 20170213
  Receipt Date: 20170607
  Transmission Date: 20170830
  Serious: Yes (Other)
  Sender: FDA-Public Use
  Company Number: CA-AMGEN-CANSL2016177269

PATIENT
  Age: 66 Year
  Sex: Female

DRUGS (15)
  1. REPATHA [Suspect]
     Active Substance: EVOLOCUMAB
     Indication: HYPERCHOLESTEROLAEMIA
     Dosage: 140 MG, Q2WK
     Route: 058
     Dates: start: 20161007
  2. DILTIAZEM. [Concomitant]
     Active Substance: DILTIAZEM
     Indication: ANGINA PECTORIS
     Dosage: 300MG/DAY, 120 MG CAP AT LUNCH WITH OPTION OF TAKING 60MG X 3 IF NEEDED, AVERAGE DOSE 180 MG/DAY
     Route: 065
  3. IRON [Concomitant]
     Active Substance: IRON
  4. VITAMIN B12 [Concomitant]
     Active Substance: CYANOCOBALAMIN
  5. SYMBICORT [Concomitant]
     Active Substance: BUDESONIDE\FORMOTEROL FUMARATE DIHYDRATE
     Dosage: UNK UNK, AS NECESSARY
  6. CARDIZEM [Concomitant]
     Active Substance: DILTIAZEM HYDROCHLORIDE
  7. CIPROFLOXACIN. [Concomitant]
     Active Substance: CIPROFLOXACIN
     Dosage: 500 MG, BID
  8. TYLENOL [Concomitant]
     Active Substance: ACETAMINOPHEN
     Dosage: UNK UNK, AS NECESSARY
  9. OXYCOCET [Concomitant]
     Active Substance: ACETAMINOPHEN\OXYCODONE HYDROCHLORIDE
     Indication: SINUS OPERATION
  10. SULFATRIM [Concomitant]
     Active Substance: SULFAMETHOXAZOLE\TRIMETHOPRIM
     Dosage: 800 MG, UNK
     Dates: end: 201612
  11. LOSEC [Concomitant]
     Active Substance: OMEPRAZOLE
     Indication: GASTROOESOPHAGEAL REFLUX DISEASE
     Dosage: 20 MG, QD
  12. HIZENTRA [Concomitant]
     Active Substance: HUMAN IMMUNOGLOBULIN G
  13. FOLIC ACID. [Concomitant]
     Active Substance: FOLIC ACID
  14. VITAMIN D [Concomitant]
     Active Substance: CHOLECALCIFEROL
  15. ATIVAN [Concomitant]
     Active Substance: LORAZEPAM
     Indication: ANXIETY
     Dosage: 2.5 MG, UNK

REACTIONS (6)
  - Headache [Recovered/Resolved]
  - Nausea [Recovered/Resolved]
  - Decreased appetite [Unknown]
  - Bacterial infection [Recovering/Resolving]
  - Influenza like illness [Unknown]
  - Chest pain [Recovered/Resolved]

NARRATIVE: CASE EVENT DATE: 2016
